FAERS Safety Report 7520852-6 (Version None)
Quarter: 2011Q2

REPORT INFORMATION
  Report Type: 
  Country: None (occurrence: None)
  Receive Date: 20110603
  Receipt Date: 20100923
  Transmission Date: 20111010
  Serious: Yes (Other)
  Sender: FDA-Public Use
  Company Number: US-BAYER-201032463NA

PATIENT
  Age: 19 Year
  Sex: Female
  Weight: 57 kg

DRUGS (7)
  1. YASMIN [Suspect]
     Indication: OVARIAN CYST
     Route: 048
     Dates: start: 20050101, end: 20060101
  2. ST. JOHN'S WORT [Concomitant]
     Dosage: ONE WEEK BEFORE INJURY
     Dates: start: 20050101
  3. POTASSIUM CHLORIDE [Concomitant]
     Dates: start: 20050101
  4. MARIJUANA [Concomitant]
     Dosage: USED 'A FEW DAYS BEFORE THE INJURY'
     Dates: start: 20050101
  5. DROSPIRENONE AND ETHINYL ESTRADIOL [Suspect]
     Indication: OVARIAN CYST
     Route: 048
  6. YAZ [Suspect]
     Indication: OVARIAN CYST
     Route: 048
     Dates: start: 20050101, end: 20060101
  7. NSAID'S [Concomitant]
     Indication: MUSCLE SPASMS

REACTIONS (3)
  - DEEP VEIN THROMBOSIS [None]
  - THROMBOSIS [None]
  - VARICOSE VEIN [None]
